FAERS Safety Report 16443328 (Version 1)
Quarter: 2019Q2

REPORT INFORMATION
  Report Type: Spontaneous
  Country: SE (occurrence: SE)
  Receive Date: 20190618
  Receipt Date: 20190618
  Transmission Date: 20190711
  Serious: Yes (Hospitalization, Other)
  Sender: FDA-Public Use
  Company Number: SE-TEVA-2019-SE-1063872

PATIENT
  Age: 62 Year
  Sex: Male

DRUGS (11)
  1. PARAFLEX [Concomitant]
     Active Substance: CHLORZOXAZONE
     Dates: start: 20180831
  2. VENLAFAXIN [Concomitant]
     Active Substance: VENLAFAXINE HYDROCHLORIDE
     Dates: start: 20180928
  3. DUORESP SPIROMAX [Concomitant]
     Active Substance: BUDESONIDE\FORMOTEROL
     Dates: start: 20181015
  4. OMEPRAZOL [Concomitant]
     Active Substance: OMEPRAZOLE
     Dates: start: 20181109
  5. GABAPENTIN. [Suspect]
     Active Substance: GABAPENTIN
     Indication: BACK PAIN
     Dosage: 300 MG 3 X 3
     Route: 048
     Dates: start: 20190315, end: 20190502
  6. BRICANYL [Concomitant]
     Active Substance: TERBUTALINE SULFATE
     Dates: start: 20171114
  7. DOXAZOSIN [Concomitant]
     Active Substance: DOXAZOSIN\DOXAZOSIN MESYLATE
     Dates: start: 20181124
  8. LITHIONIT [Concomitant]
     Active Substance: LITHIUM SULFATE
     Dates: start: 20171114
  9. OXIKODON [Concomitant]
     Dates: start: 20180413
  10. ZOPIKLON [Concomitant]
     Active Substance: ZOPICLONE
     Dates: start: 20171114
  11. INDERAL [Concomitant]
     Active Substance: PROPRANOLOL HYDROCHLORIDE
     Dates: start: 20171115

REACTIONS (1)
  - Hallucination, visual [Not Recovered/Not Resolved]

NARRATIVE: CASE EVENT DATE: 20190429
